FAERS Safety Report 4817135-1 (Version None)
Quarter: 2005Q4

REPORT INFORMATION
  Report Type: 
  Country: None (occurrence: None)
  Receive Date: 20051101
  Receipt Date: 20050531
  Transmission Date: 20060501
  Serious: Yes (Hospitalization)
  Sender: FDA-Public Use
  Company Number: US-ROCHE-406390

PATIENT
  Age: 47 Year
  Sex: Male
  Weight: 93.4 kg

DRUGS (9)
  1. PEG-INTERFERON ALFA 2A (RO 25-8310) [Suspect]
     Dosage: FORM: INJECTION.
     Route: 058
     Dates: start: 20041101
  2. RIBAVIRIN [Suspect]
     Route: 048
     Dates: start: 20041101
  3. PROPRANOLOL [Concomitant]
     Dates: start: 20040815, end: 20050506
  4. SYNTHROID [Concomitant]
     Dates: start: 20050506
  5. ZYRTEC-D 12 HOUR [Concomitant]
     Dosage: TOTAL DAILY DOSE/UNIT: REPORTED AS 2 TABS.
     Dates: start: 20040615
  6. MULTIVITAMIN NOS [Concomitant]
     Dosage: DAILY, PRN.
  7. IBUPROFEN [Concomitant]
  8. TYLENOL (CAPLET) [Concomitant]
  9. STOOL SOFTENER [Concomitant]

REACTIONS (7)
  - ALANINE AMINOTRANSFERASE INCREASED [None]
  - AORTIC DILATATION [None]
  - ATRIAL FIBRILLATION [None]
  - ATRIOVENTRICULAR BLOCK [None]
  - HAEMATOCRIT DECREASED [None]
  - HAEMOGLOBIN DECREASED [None]
  - HYPOTHYROIDISM [None]
